FAERS Safety Report 9744587 (Version 1)
Quarter: 2013Q4

REPORT INFORMATION
  Report Type: Spontaneous
  Country: US (occurrence: US)
  Receive Date: 20131210
  Receipt Date: 20131210
  Transmission Date: 20140711
  Serious: Yes (Hospitalization, Other)
  Sender: FDA-Public Use
  Company Number: US-GILEAD-2013-0089556

PATIENT
  Age: 52 Year
  Sex: Male
  Weight: 63.95 kg

DRUGS (3)
  1. STRIBILD [Suspect]
     Indication: HIV INFECTION
     Dosage: 1 DF, QD
     Route: 048
     Dates: start: 20130805, end: 20130808
  2. ASPIRIN [Concomitant]
  3. PRAVASTATIN [Concomitant]
     Indication: HYPERLIPIDAEMIA

REACTIONS (2)
  - Small intestinal obstruction [Recovered/Resolved]
  - Pancreatitis acute [Recovered/Resolved]
